FAERS Safety Report 4883820-9 (Version None)
Quarter: 2006Q1

REPORT INFORMATION
  Report Type: 
  Country: None (occurrence: None)
  Receive Date: 20060117
  Receipt Date: 20060117
  Transmission Date: 20060701
  Serious: Yes (Hospitalization, Disabling)
  Sender: FDA-Public Use
  Company Number: None

PATIENT
  Age: 1 Year
  Sex: Male

DRUGS (18)
  1. RILUTEK [Suspect]
     Indication: SPINAL MUSCULAR ATROPHY
     Dosage: 50 MG DAILY PO
     Route: 048
     Dates: start: 20050928
  2. MIRALAX [Concomitant]
  3. PULMICORT [Concomitant]
  4. ALBUTEROL [Concomitant]
  5. UNASYN [Concomitant]
  6. VANCOMYCIN [Concomitant]
  7. ZANTAC [Concomitant]
  8. TYLENOL (CAPLET) [Concomitant]
  9. CHLORALHYDRATE [Concomitant]
  10. MORPHINE [Concomitant]
  11. VECURONIUM BROMIDE [Concomitant]
  12. LASIX [Concomitant]
  13. UNISOM [Concomitant]
  14. RANITIDINE [Concomitant]
  15. METHADONE [Concomitant]
  16. SODIUM CHLORIDE [Concomitant]
  17. POTASSIUM [Concomitant]
  18. CHLORIDE [Concomitant]

REACTIONS (4)
  - BRONCHIOLITIS [None]
  - COUGH [None]
  - NASOPHARYNGITIS [None]
  - TRACHEAL DISORDER [None]
